FAERS Safety Report 19263772 (Version 1)
Quarter: 2021Q2

REPORT INFORMATION
  Report Type: Spontaneous
  Country: US (occurrence: US)
  Receive Date: 20210517
  Receipt Date: 20210517
  Transmission Date: 20210717
  Serious: Yes (Hospitalization, Other)
  Sender: FDA-Public Use
  Company Number: US-HIKMA PHARMACEUTICALS USA INC.-US-H14001-21-02208

PATIENT
  Age: 53 Year
  Sex: Female
  Weight: 81.2 kg

DRUGS (6)
  1. PREDNISONE. [Suspect]
     Active Substance: PREDNISONE
     Indication: PRODUCT USED FOR UNKNOWN INDICATION
     Dosage: UNKNOWN
     Route: 065
  2. SULFAMETHOXAZOLE/TRIMETHOPRIM [Concomitant]
     Active Substance: SULFAMETHOXAZOLE\TRIMETHOPRIM
     Indication: PRODUCT USED FOR UNKNOWN INDICATION
     Dosage: UNKNOWN
     Route: 065
     Dates: start: 20170914
  3. OMEPRAZOLE. [Concomitant]
     Active Substance: OMEPRAZOLE
     Indication: PRODUCT USED FOR UNKNOWN INDICATION
     Dosage: UNKNOWN
     Route: 065
     Dates: start: 201611
  4. MYFORTIC [Suspect]
     Active Substance: MYCOPHENOLATE SODIUM
     Indication: PRODUCT USED FOR UNKNOWN INDICATION
     Dosage: UNKNOWN
     Route: 065
     Dates: start: 20170914
  5. INCB039110 [Suspect]
     Active Substance: ITACITINIB
     Indication: BRONCHIOLITIS OBLITERANS SYNDROME
     Route: 048
     Dates: start: 20210217, end: 20210409
  6. TACROLIMUS. [Suspect]
     Active Substance: TACROLIMUS
     Indication: PRODUCT USED FOR UNKNOWN INDICATION
     Dosage: UNKNOWN
     Route: 065

REACTIONS (12)
  - Hypotension [Recovered/Resolved]
  - Abdominal pain [Unknown]
  - Hypercapnia [Not Recovered/Not Resolved]
  - Dysuria [Recovered/Resolved]
  - Respiratory failure [Unknown]
  - Febrile neutropenia [Recovered/Resolved]
  - Pneumonia fungal [Recovering/Resolving]
  - Diarrhoea [Unknown]
  - Nausea [Unknown]
  - Pyrexia [Unknown]
  - Condition aggravated [Not Recovered/Not Resolved]
  - Large intestine infection [Recovered/Resolved]

NARRATIVE: CASE EVENT DATE: 20210327
